FAERS Safety Report 18909186 (Version 1)
Quarter: 2021Q1

REPORT INFORMATION
  Report Type: Spontaneous
  Country: US (occurrence: US)
  Receive Date: 20210217
  Receipt Date: 20210217
  Transmission Date: 20210420
  Serious: No
  Sender: FDA-Public Use
  Company Number: None

PATIENT
  Age: 55 Year
  Sex: Female

DRUGS (1)
  1. BOTOX [Suspect]
     Active Substance: ONABOTULINUMTOXINA
     Dosage: FREQUENCY: OTHER
     Route: 030

REACTIONS (4)
  - Swelling [None]
  - Rash [None]
  - Acne [None]
  - Hordeolum [None]

NARRATIVE: CASE EVENT DATE: 20210127
